FAERS Safety Report 25690213 (Version 2)
Quarter: 2025Q3

REPORT INFORMATION
  Report Type: Other
  Country: CA (occurrence: CA)
  Receive Date: 20250818
  Receipt Date: 20250923
  Transmission Date: 20251020
  Serious: Yes (Hospitalization)
  Sender: APOTEX
  Company Number: CA-APOTEX-2025AP009915

PATIENT
  Age: 46 Year
  Sex: Male

DRUGS (1)
  1. LENALIDOMIDE [Suspect]
     Active Substance: LENALIDOMIDE
     Indication: Plasma cell myeloma
     Dosage: 10 MILLIGRAM, QD
     Route: 048
     Dates: start: 20250702, end: 2025

REACTIONS (6)
  - Tremor [Unknown]
  - Vision blurred [Unknown]
  - Headache [Recovered/Resolved]
  - Dizziness [Unknown]
  - Rash [Unknown]
  - Malaise [Unknown]

NARRATIVE: CASE EVENT DATE: 20250701
